FAERS Safety Report 5855856-2 (Version None)
Quarter: 2008Q3

REPORT INFORMATION
  Report Type: 
  Country: None (occurrence: None)
  Receive Date: 20080825
  Receipt Date: 20080211
  Transmission Date: 20090109
  Serious: No
  Sender: FDA-Public Use
  Company Number: A0708733A

PATIENT
  Age: 51 Year
  Sex: Female

DRUGS (2)
  1. MALARONE [Suspect]
     Indication: MALARIA
     Route: 048
     Dates: start: 20060801, end: 20060801
  2. BIRTH CONTROL PILLS [Concomitant]

REACTIONS (1)
  - MOUTH ULCERATION [None]
